FAERS Safety Report 9562670 (Version 3)
Quarter: 2013Q4

REPORT INFORMATION
  Report Type: Spontaneous
  Country: US (occurrence: US)
  Receive Date: 20130927
  Receipt Date: 20131226
  Transmission Date: 20140711
  Serious: No
  Sender: FDA-Public Use
  Company Number: US-PFIZER INC-2013277137

PATIENT
  Age: 55 Year
  Sex: Female
  Weight: 49.89 kg

DRUGS (2)
  1. RELPAX [Suspect]
     Indication: MIGRAINE
     Dosage: 40 MG, AS NEEDED
     Route: 048
     Dates: start: 200307
  2. TOPAMAX [Concomitant]
     Indication: EPILEPSY
     Dosage: 50 MG, DAILY
     Route: 048

REACTIONS (1)
  - Drug ineffective [Unknown]
